FAERS Safety Report 24233089 (Version 1)
Quarter: 2024Q3

REPORT INFORMATION
  Report Type: Spontaneous
  Country: CN (occurrence: CN)
  Receive Date: 20240821
  Receipt Date: 20240821
  Transmission Date: 20241017
  Serious: Yes (Hospitalization)
  Sender: GLAND PHARMA
  Company Number: CN-GLANDPHARMA-CN-2024GLNLIT00639

PATIENT
  Age: 57 Year
  Sex: Female

DRUGS (3)
  1. GEMCITABINE [Suspect]
     Active Substance: GEMCITABINE
     Indication: Cholangiocarcinoma
     Dosage: CYCLE 1
     Route: 065
     Dates: start: 20220804
  2. GEMCITABINE [Suspect]
     Active Substance: GEMCITABINE
     Dosage: 2 CYCLES
     Route: 065
     Dates: start: 20220810
  3. GEMCITABINE [Suspect]
     Active Substance: GEMCITABINE
     Dosage: CYCLE 3-5
     Route: 065

REACTIONS (2)
  - Hyperammonaemia [Unknown]
  - Product use in unapproved indication [Unknown]
